FAERS Safety Report 13016386 (Version 2)
Quarter: 2020Q3

REPORT INFORMATION
  Report Type: Spontaneous
  Country: US (occurrence: US)
  Receive Date: 20161212
  Receipt Date: 20200731
  Transmission Date: 20201102
  Serious: Yes (Death, Hospitalization)
  Sender: FDA-Public Use
  Company Number: US-JNJFOC-20161124839

PATIENT
  Age: 81 Year
  Sex: Female

DRUGS (4)
  1. LOVENOX [Suspect]
     Active Substance: ENOXAPARIN SODIUM
     Indication: PRODUCT USED FOR UNKNOWN INDICATION
     Route: 065
     Dates: start: 201406, end: 201406
  2. XARELTO [Suspect]
     Active Substance: RIVAROXABAN
     Indication: PULMONARY EMBOLISM
     Route: 048
     Dates: start: 20140617
  3. XARELTO [Suspect]
     Active Substance: RIVAROXABAN
     Indication: DEEP VEIN THROMBOSIS
     Dosage: 15 MG AND 20 MG. THE PATIENT WAS TAKING 15 MG OF TWICE DAILY AND 20 MG OF ONCE IN A DAY
     Route: 048
     Dates: start: 20140326, end: 20140615
  4. ASPIRIN. [Suspect]
     Active Substance: ASPIRIN
     Indication: PRODUCT USED FOR UNKNOWN INDICATION
     Route: 065

REACTIONS (3)
  - Lower gastrointestinal haemorrhage [Recovered/Resolved]
  - Haematuria [Recovering/Resolving]
  - Gastrointestinal polyp haemorrhage [Recovering/Resolving]

NARRATIVE: CASE EVENT DATE: 20140409
